FAERS Safety Report 14610022 (Version 1)
Quarter: 2018Q1

REPORT INFORMATION
  Report Type: Spontaneous
  Country: US (occurrence: US)
  Receive Date: 20180307
  Receipt Date: 20180307
  Transmission Date: 20180509
  Serious: No
  Sender: FDA-Public Use
  Company Number: None

PATIENT
  Age: 65 Year
  Sex: Female
  Weight: 77.4 kg

DRUGS (2)
  1. BESALYTE [Concomitant]
  2. HARVONI [Suspect]
     Active Substance: LEDIPASVIR\SOFOSBUVIR
     Indication: HEPATITIS C

REACTIONS (3)
  - Swollen tongue [None]
  - Pharyngeal oedema [None]
  - Rash [None]

NARRATIVE: CASE EVENT DATE: 20161020
